FAERS Safety Report 24240373 (Version 2)
Quarter: 2024Q3

REPORT INFORMATION
  Report Type: Spontaneous
  Country: US (occurrence: US)
  Receive Date: 20240822
  Receipt Date: 20240909
  Transmission Date: 20241017
  Serious: Yes (Life-Threatening, Hospitalization, Disabling)
  Sender: TEVA
  Company Number: US-TEVA-VS-3234490

PATIENT
  Age: 55 Year
  Sex: Female

DRUGS (3)
  1. NALOXONE [Suspect]
     Active Substance: NALOXONE
     Indication: Overdose
     Route: 065
  2. FENTANYL [Suspect]
     Active Substance: FENTANYL\FENTANYL CITRATE
     Indication: Product used for unknown indication
     Route: 065
  3. DEVICE [Suspect]
     Active Substance: DEVICE

REACTIONS (4)
  - CHANTER syndrome [Recovered/Resolved with Sequelae]
  - Drug ineffective [Unknown]
  - Toxicity to various agents [Recovered/Resolved with Sequelae]
  - Overdose [Unknown]
